FAERS Safety Report 7569966-5 (Version None)
Quarter: 2011Q2

REPORT INFORMATION
  Report Type: 
  Country: None (occurrence: None)
  Receive Date: 20110622
  Receipt Date: 20110622
  Transmission Date: 20111010
  Serious: No
  Sender: FDA-Public Use
  Company Number: None

PATIENT
  Age: 19 Year
  Sex: Male

DRUGS (2)
  1. RISPERIDONE [Suspect]
     Indication: OBSESSIVE-COMPULSIVE DISORDER
     Dosage: 1 MG TAB 1/2 PO QHS 1/2 PO PRN BY MOUTH
     Route: 048
     Dates: start: 20110101
  2. RISPERIDONE [Suspect]
     Indication: AUTISM
     Dosage: 2 MG TAB 1 PO QHS 1 PO PRN BY MOUTH
     Route: 048
     Dates: start: 20110301

REACTIONS (7)
  - PRODUCT SUBSTITUTION ISSUE [None]
  - SOCIAL PROBLEM [None]
  - NO THERAPEUTIC RESPONSE [None]
  - THINKING ABNORMAL [None]
  - AGITATION [None]
  - DISTURBANCE IN ATTENTION [None]
  - OBSESSIVE THOUGHTS [None]
